FAERS Safety Report 8708264 (Version 3)
Quarter: 2012Q4

REPORT INFORMATION
  Report Type: 
  Country: IT (occurrence: IT)
  Receive Date: 20120806
  Receipt Date: 20120925
  Transmission Date: 20130627
  Serious: Yes (Other)
  Sender: FDA-Public Use
  Company Number: IT-JNJFOC-20120800076

PATIENT
  Age: 84 Year
  Sex: Female

DRUGS (12)
  1. SERENASE [Suspect]
     Indication: DEPRESSION
     Route: 048
     Dates: start: 20120703, end: 20120711
  2. SERENASE [Suspect]
     Indication: DEPRESSION
     Route: 048
     Dates: start: 20120613, end: 20120702
  3. TRITTICO [Suspect]
     Indication: DEPRESSION
     Route: 048
     Dates: start: 20120613, end: 20120701
  4. CLONIDINE [Concomitant]
     Indication: HYPERTENSION
     Route: 062
  5. REPAGLINIDE [Concomitant]
     Indication: TYPE 2 DIABETES MELLITUS
     Route: 048
  6. METFORMIN HYDROCHLORIDE [Concomitant]
     Indication: TYPE 2 DIABETES MELLITUS
     Route: 048
  7. PARACETAMOL [Concomitant]
     Indication: PRODUCT USED FOR UNKNOWN INDICATION
     Route: 048
  8. KARVEA [Concomitant]
     Indication: HYPERTENSION
     Route: 048
  9. NORVASC [Concomitant]
     Indication: HYPERTENSION
     Route: 048
     Dates: start: 20120613, end: 20120701
  10. ACETYLSALICYLIC ACID [Concomitant]
     Indication: HYPERTENSION
     Route: 048
  11. LANTUS [Concomitant]
     Indication: TYPE 2 DIABETES MELLITUS
  12. GABAPENTIN [Concomitant]
     Indication: PRODUCT USED FOR UNKNOWN INDICATION
     Route: 048

REACTIONS (6)
  - Anticholinergic syndrome [Recovering/Resolving]
  - Dysarthria [Recovering/Resolving]
  - Dry mouth [Recovering/Resolving]
  - Extrapyramidal disorder [Recovering/Resolving]
  - Dysstasia [Recovering/Resolving]
  - Decreased appetite [Recovering/Resolving]
